FAERS Safety Report 5746788-9 (Version None)
Quarter: 2008Q2

REPORT INFORMATION
  Report Type: 
  Country: None (occurrence: None)
  Receive Date: 20080520
  Receipt Date: 20080508
  Transmission Date: 20081010
  Serious: Yes (Hospitalization)
  Sender: FDA-Public Use
  Company Number: US022576

PATIENT
  Age: 67 Year
  Sex: Female

DRUGS (5)
  1. MODIODAL [Suspect]
     Indication: NARCOLEPSY
     Dosage: 200 MG QD ORAL
     Route: 048
     Dates: start: 20070525, end: 20070628
  2. MODIODAL [Suspect]
     Indication: NARCOLEPSY
     Dosage: 300 MG QD ORAL
     Route: 048
     Dates: start: 20070629
  3. AMOBAN [Suspect]
     Dosage: 7.5 MG QD PRN ORAL
     Route: 048
     Dates: start: 20070629
  4. TOLEDOMIN [Suspect]
     Indication: DEPRESSION
     Dosage: 15 MG QD ORAL
     Route: 048
     Dates: start: 20070629
  5. RITALIN [Concomitant]

REACTIONS (2)
  - DRUG EFFECT DECREASED [None]
  - FRACTURE [None]
